FAERS Safety Report 20445859 (Version 1)
Quarter: 2022Q1

REPORT INFORMATION
  Report Type: Report from Study
  Country: RO (occurrence: None)
  Receive Date: 20220208
  Receipt Date: 20220208
  Transmission Date: 20220423
  Serious: Yes (Other)
  Sender: FDA-Public Use
  Company Number: 2022A057203

PATIENT
  Age: 70 Year
  Sex: Male

DRUGS (1)
  1. TAGRISSO [Suspect]
     Active Substance: OSIMERTINIB
     Indication: Lung neoplasm malignant
     Route: 048
     Dates: start: 20210115, end: 202201

REACTIONS (4)
  - Pleurisy [Unknown]
  - Pericarditis [Unknown]
  - Dyspnoea [Unknown]
  - Cough [Unknown]
